FAERS Safety Report 6244539-5 (Version None)
Quarter: 2009Q2

REPORT INFORMATION
  Report Type: 
  Country: None (occurrence: None)
  Receive Date: 20090625
  Receipt Date: 20090616
  Transmission Date: 20091009
  Serious: Yes (Hospitalization, Other)
  Sender: FDA-Public Use
  Company Number: US-JNJFOC-20090405046

PATIENT
  Sex: Female
  Weight: 73.94 kg

DRUGS (2)
  1. ULTRAM ER [Suspect]
     Indication: OSTEOARTHRITIS
     Route: 048
  2. IBUPROFEN [Concomitant]

REACTIONS (5)
  - DIZZINESS [None]
  - DYSPNOEA [None]
  - FEELING ABNORMAL [None]
  - HEART RATE INCREASED [None]
  - SINUS BRADYCARDIA [None]
